FAERS Safety Report 11867173 (Version 8)
Quarter: 2021Q2

REPORT INFORMATION
  Report Type: Report from Study
  Country: AR (occurrence: AR)
  Receive Date: 20151224
  Receipt Date: 20210517
  Transmission Date: 20210716
  Serious: Yes (Other)
  Sender: FDA-Public Use
  Company Number: PHHY2015AR165255

PATIENT
  Age: 66 Year
  Sex: Female

DRUGS (6)
  1. GILENYA [Suspect]
     Active Substance: FINGOLIMOD HYDROCHLORIDE
     Dosage: 0.5 MG, QD
     Route: 048
  2. GILENYA [Suspect]
     Active Substance: FINGOLIMOD HYDROCHLORIDE
     Indication: MULTIPLE SCLEROSIS
     Dosage: 0.5 MG, QD
     Route: 065
     Dates: start: 201307
  3. PLENICA [Suspect]
     Active Substance: PREGABALIN
     Indication: FEAR
     Dosage: 75 OT
     Route: 065
     Dates: start: 201709
  4. GILENYA [Suspect]
     Active Substance: FINGOLIMOD HYDROCHLORIDE
     Dosage: 0.5 MG, QD
     Route: 048
     Dates: start: 20130717
  5. GILENYA [Suspect]
     Active Substance: FINGOLIMOD HYDROCHLORIDE
     Dosage: UNK
     Route: 065
  6. NICOTINELL [Suspect]
     Active Substance: NICOTINE
     Indication: PRODUCT USED FOR UNKNOWN INDICATION
     Dosage: 1 MG
     Route: 065

REACTIONS (23)
  - Aortic arteriosclerosis [Recovering/Resolving]
  - Asthenia [Not Recovered/Not Resolved]
  - Discomfort [Unknown]
  - Balance disorder [Unknown]
  - Panic attack [Unknown]
  - Muscle spasticity [Unknown]
  - Helplessness [Unknown]
  - Osteoporosis [Unknown]
  - Stress [Recovering/Resolving]
  - Gastric disorder [Unknown]
  - Fear [Not Recovered/Not Resolved]
  - Visual impairment [Not Recovered/Not Resolved]
  - Depression [Not Recovered/Not Resolved]
  - Blood cholesterol abnormal [Unknown]
  - Irritable bowel syndrome [Unknown]
  - Tension [Unknown]
  - Drug ineffective [Unknown]
  - Temperature intolerance [Unknown]
  - Memory impairment [Unknown]
  - Anxiety [Unknown]
  - Angiopathy [Not Recovered/Not Resolved]
  - Pain in extremity [Not Recovered/Not Resolved]
  - General physical health deterioration [Unknown]

NARRATIVE: CASE EVENT DATE: 202003
